FAERS Safety Report 17455034 (Version 3)
Quarter: 2020Q3

REPORT INFORMATION
  Report Type: Report from Study
  Country: US (occurrence: US)
  Receive Date: 20200225
  Receipt Date: 20200722
  Transmission Date: 20201102
  Serious: No
  Sender: FDA-Public Use
  Company Number: NVSC2020US050791

PATIENT
  Sex: Female

DRUGS (1)
  1. GLEEVEC [Suspect]
     Active Substance: IMATINIB MESYLATE
     Indication: PRODUCT USED FOR UNKNOWN INDICATION
     Dosage: UNK
     Route: 065

REACTIONS (8)
  - Skin burning sensation [Unknown]
  - Pruritus [Unknown]
  - Rash [Unknown]
  - Drug intolerance [Unknown]
  - Hypersensitivity [Unknown]
  - Thermal burn [Unknown]
  - Skin exfoliation [Unknown]
  - Photosensitivity reaction [Unknown]
